FAERS Safety Report 5002175-2 (Version None)
Quarter: 2006Q2

REPORT INFORMATION
  Report Type: 
  Country: None (occurrence: None)
  Receive Date: 20060515
  Receipt Date: 20060508
  Transmission Date: 20061013
  Serious: Yes (Other)
  Sender: FDA-Public Use
  Company Number: PHBS2006JP06925

PATIENT
  Age: 77 Year
  Sex: Male

DRUGS (4)
  1. DIOVAN [Suspect]
     Indication: HYPERTENSION
     Dosage: 80 MG, QD
     Route: 048
     Dates: start: 20050413, end: 20060427
  2. RYTHMODAN [Concomitant]
     Dosage: 300 MG, UNK
     Route: 048
     Dates: start: 20011023
  3. WARFARIN SODIUM [Concomitant]
     Dosage: 1 MG, UNK
     Route: 048
     Dates: start: 20011023
  4. PARAMIDIN [Concomitant]
     Dosage: 300 MG, UNK
     Route: 048
     Dates: start: 20011023

REACTIONS (1)
  - BLOOD CREATINE PHOSPHOKINASE INCREASED [None]
